FAERS Safety Report 6737778-8 (Version None)
Quarter: 2010Q2

REPORT INFORMATION
  Report Type: 
  Country: None (occurrence: None)
  Receive Date: 20100521
  Receipt Date: 20100521
  Transmission Date: 20101027
  Serious: Yes (Life-Threatening)
  Sender: FDA-Public Use
  Company Number: None

PATIENT
  Sex: Female
  Weight: 104.2 kg

DRUGS (2)
  1. BUSULFEX [Suspect]
     Indication: ACUTE MYELOID LEUKAEMIA
     Dosage: 56MG 4X A DAY IV
     Route: 042
     Dates: start: 20091209, end: 20091212
  2. CYCLOPHOSPHAMIDE [Suspect]
     Indication: ACUTE MYELOID LEUKAEMIA
     Dosage: 4200MG ONCE A DAY IV
     Route: 042
     Dates: start: 20091213, end: 20091214

REACTIONS (3)
  - BONE MARROW FAILURE [None]
  - CHIMERISM [None]
  - TRANSPLANT FAILURE [None]
